FAERS Safety Report 8447059-2 (Version None)
Quarter: 2012Q2

REPORT INFORMATION
  Report Type: 
  Country: None (occurrence: None)
  Receive Date: 20120619
  Receipt Date: 20120613
  Transmission Date: 20120825
  Serious: Yes (Hospitalization)
  Sender: FDA-Public Use
  Company Number: PHHY2012TR050766

PATIENT
  Age: 66 Year
  Sex: Female

DRUGS (2)
  1. HYOSCYAMUS NIGER [Interacting]
     Indication: HAEMORRHOIDS
     Dosage: UNK UKN, UNK
  2. WARFARIN SODIUM [Suspect]
     Dosage: UNK UKN, UNK
     Route: 048

REACTIONS (11)
  - DELIRIUM [None]
  - SINUS TACHYCARDIA [None]
  - HALLUCINATION, VISUAL [None]
  - DISORIENTATION [None]
  - EMOTIONAL DISORDER [None]
  - INSOMNIA [None]
  - ABNORMAL BEHAVIOUR [None]
  - AGITATION [None]
  - ATAXIA [None]
  - MYDRIASIS [None]
  - DRUG INTERACTION [None]
